FAERS Safety Report 6755419-0 (Version None)
Quarter: 2010Q2

REPORT INFORMATION
  Report Type: 
  Country: None (occurrence: None)
  Receive Date: 20100604
  Receipt Date: 20100525
  Transmission Date: 20101027
  Serious: Yes (Other)
  Sender: FDA-Public Use
  Company Number: US-PFIZER INC-2009263291

PATIENT
  Sex: Male
  Weight: 84 kg

DRUGS (5)
  1. SUTENT [Suspect]
     Indication: METASTATIC RENAL CELL CARCINOMA
     Dosage: 50 MG, 1X/DAY
     Route: 048
     Dates: start: 20091001, end: 20100207
  2. SUTENT [Suspect]
     Indication: RENAL CANCER
  3. AMLODIPINE [Suspect]
     Indication: HYPERTENSION
     Dosage: 10 MG, 1X/DAY
     Route: 048
     Dates: end: 20100301
  4. LISINOPRIL [Concomitant]
     Indication: HYPERTENSION
     Dosage: 20/25 MG DAILY
     Route: 048
  5. LEVOTHYROXINE [Concomitant]
     Indication: THYROID DISORDER
     Dosage: 125 UG, 1X/DAY
     Route: 048

REACTIONS (3)
  - INCREASED UPPER AIRWAY SECRETION [None]
  - SWOLLEN TONGUE [None]
  - TRISMUS [None]
